FAERS Safety Report 11866740 (Version 1)
Quarter: 2015Q4

REPORT INFORMATION
  Report Type: Spontaneous
  Country: FR (occurrence: FR)
  Receive Date: 20151224
  Receipt Date: 20151224
  Transmission Date: 20160305
  Serious: Yes (Hospitalization, Other)
  Sender: FDA-Public Use
  Company Number: FR-ALEMBIC PHARMACUETICALS LIMITED-2015SCAL000097

PATIENT
  Age: 71 Year
  Sex: Female

DRUGS (1)
  1. LEFLUNOMIDE. [Suspect]
     Active Substance: LEFLUNOMIDE
     Indication: PSORIATIC ARTHROPATHY
     Dosage: 20 MG, QD, AFTER LOADING DOSE

REACTIONS (3)
  - Pleuropericarditis [Recovering/Resolving]
  - Carbohydrate antigen 125 increased [Recovered/Resolved]
  - Product use issue [Unknown]
